FAERS Safety Report 9363037 (Version 1)
Quarter: 2013Q2

REPORT INFORMATION
  Report Type: Spontaneous
  Country: US (occurrence: US)
  Receive Date: 20130624
  Receipt Date: 20130624
  Transmission Date: 20140414
  Serious: No
  Sender: FDA-Public Use
  Company Number: US-PFIZER INC-2013184008

PATIENT
  Age: 72 Year
  Sex: Female

DRUGS (1)
  1. SUTENT [Suspect]
     Indication: CARCINOID TUMOUR PULMONARY
     Dosage: 37.5 MG, 1X/DAY
     Route: 048
     Dates: start: 20130419

REACTIONS (6)
  - Skin lesion [Unknown]
  - Pain in extremity [Unknown]
  - Asthenia [Unknown]
  - Fatigue [Unknown]
  - Myalgia [Unknown]
  - Off label use [Unknown]
